FAERS Safety Report 17641017 (Version 1)
Quarter: 2020Q2

REPORT INFORMATION
  Report Type: Spontaneous
  Country: NL (occurrence: NL)
  Receive Date: 20200407
  Receipt Date: 20200407
  Transmission Date: 20200713
  Serious: Yes (Life-Threatening, Other)
  Sender: FDA-Public Use
  Company Number: NL-PFIZER INC-2020139037

PATIENT
  Age: 61 Year
  Sex: Female
  Weight: 79.8 kg

DRUGS (5)
  1. RED YEAST RICE [Concomitant]
     Active Substance: DIETARY SUPPLEMENT
  2. DURATEARS Z [Concomitant]
  3. METHYLPREDNISOLONE. [Suspect]
     Active Substance: METHYLPREDNISOLONE
     Indication: EYE DISORDER
     Dosage: 250 MG, WEEKLY
     Dates: start: 20181008
  4. ALENDRONINEZUUR/CHOLECALCIFEROL AUROBINDO [Concomitant]
     Dosage: TABLET + CHEWINGTABLET
  5. EUTHYROX [Concomitant]
     Active Substance: LEVOTHYROXINE SODIUM
     Dosage: 50 UG, UNK

REACTIONS (2)
  - Transaminases increased [Unknown]
  - Hepatic failure [Unknown]

NARRATIVE: CASE EVENT DATE: 20181217
